FAERS Safety Report 8154870 (Version 10)
Quarter: 2016Q2

REPORT INFORMATION
  Report Type: Spontaneous
  Country: US (occurrence: US)
  Receive Date: 20110923
  Receipt Date: 20160408
  Transmission Date: 20160815
  Serious: Yes (Hospitalization, Disabling)
  Sender: FDA-Public Use
  Company Number: US-009507513-1109USA02512

PATIENT
  Sex: Male

DRUGS (3)
  1. PROPECIA [Suspect]
     Active Substance: FINASTERIDE
     Indication: ANDROGENETIC ALOPECIA
     Dosage: 1 MG, QD
     Route: 048
     Dates: start: 20080108, end: 20080519
  2. FINASTERIDE. [Suspect]
     Active Substance: FINASTERIDE
     Indication: ANDROGENETIC ALOPECIA
     Dosage: 5 MG, UNKNOWN
     Route: 048
     Dates: start: 20080611, end: 20101123
  3. PROSCAR [Suspect]
     Active Substance: FINASTERIDE
     Indication: ANDROGENETIC ALOPECIA
     Dosage: 5 MG, QD
     Route: 048
     Dates: start: 20000501, end: 20020924

REACTIONS (26)
  - Male genital examination abnormal [Unknown]
  - Penis disorder [Unknown]
  - Androgen deficiency [Unknown]
  - Vertigo positional [Recovered/Resolved]
  - Prostatomegaly [Unknown]
  - Rhinitis [Unknown]
  - Dysphagia [Unknown]
  - Phimosis [Unknown]
  - Prostatic specific antigen increased [Recovered/Resolved]
  - Balanoposthitis [Recovering/Resolving]
  - Back pain [Unknown]
  - Depression [Unknown]
  - Hernia [Unknown]
  - Benign prostatic hyperplasia [Unknown]
  - Emotional distress [Unknown]
  - Poor dental condition [Unknown]
  - Genitourinary tract neoplasm [Unknown]
  - Dyspnoea [Unknown]
  - Anxiety [Unknown]
  - Wheezing [Unknown]
  - Drug administration error [Unknown]
  - Erectile dysfunction [Not Recovered/Not Resolved]
  - Anorgasmia [Recovering/Resolving]
  - Inguinal hernia [Unknown]
  - Dry mouth [Unknown]
  - Abdominal pain [Unknown]

NARRATIVE: CASE EVENT DATE: 2007
